FAERS Safety Report 5380120-8 (Version None)
Quarter: 2007Q3

REPORT INFORMATION
  Report Type: 
  Country: None (occurrence: None)
  Receive Date: 20070706
  Receipt Date: 20070426
  Transmission Date: 20080115
  Serious: No
  Sender: FDA-Public Use
  Company Number: A0648908A

PATIENT
  Age: 75 Year
  Sex: Female

DRUGS (4)
  1. TYKERB [Suspect]
     Indication: BREAST CANCER
     Dosage: 250MG VARIABLE DOSE
     Route: 048
     Dates: start: 20070418
  2. XELODA [Concomitant]
  3. AMBIEN [Concomitant]
  4. PROVIGIL [Concomitant]

REACTIONS (1)
  - ORAL PAIN [None]
